FAERS Safety Report 22255421 (Version 1)
Quarter: 2023Q2

REPORT INFORMATION
  Report Type: Spontaneous
  Country: JP (occurrence: JP)
  Receive Date: 20230426
  Receipt Date: 20230426
  Transmission Date: 20230722
  Serious: Yes (Other)
  Sender: FDA-Public Use
  Company Number: JP-ELI_LILLY_AND_COMPANY-JP202304006741

PATIENT
  Age: 85 Year
  Sex: Male

DRUGS (2)
  1. BAQSIMI [Suspect]
     Active Substance: GLUCAGON
     Indication: Hypoglycaemia
     Dosage: 3 MG, SINGLE
     Route: 045
  2. DEXTROSE [Concomitant]
     Active Substance: DEXTROSE\DEXTROSE MONOHYDRATE
     Indication: Hypoglycaemia
     Route: 048

REACTIONS (3)
  - Hypoglycaemic unconsciousness [Recovered/Resolved]
  - Expired product administered [Unknown]
  - Malaise [Unknown]
